FAERS Safety Report 21878560 (Version 1)
Quarter: 2023Q1

REPORT INFORMATION
  Report Type: Report from Study
  Country: BR (occurrence: BR)
  Receive Date: 20230118
  Receipt Date: 20230118
  Transmission Date: 20230417
  Serious: Yes (Hospitalization)
  Sender: FDA-Public Use
  Company Number: BR-TAKEDA-BR202004284

PATIENT
  Age: 7 Year
  Sex: Male
  Weight: 18.8 kg

DRUGS (5)
  1. IDURSULFASE [Suspect]
     Active Substance: IDURSULFASE
     Indication: Mucopolysaccharidosis II
     Dosage: UNK
     Route: 042
     Dates: start: 20200122
  2. IDURSULFASE [Suspect]
     Active Substance: IDURSULFASE
     Dosage: 2 DOSAGE FORM, 1/WEEK
     Route: 042
  3. IMIPRAMINE [Concomitant]
     Active Substance: IMIPRAMINE
     Indication: Agitation
     Dosage: UNK
     Route: 065
  4. RISPERIDONE [Concomitant]
     Active Substance: RISPERIDONE
     Dosage: 2 MILLIGRAM
     Route: 065
  5. CLONIDINE [Concomitant]
     Active Substance: CLONIDINE
     Dosage: 0.100 MILLIGRAM
     Route: 065

REACTIONS (7)
  - Muscular weakness [Recovered/Resolved]
  - Nervous system disorder [Unknown]
  - Aggression [Unknown]
  - Agitation [Unknown]
  - Hypersensitivity [Unknown]
  - Influenza [Recovered/Resolved]
  - Product dose omission issue [Unknown]

NARRATIVE: CASE EVENT DATE: 20201001
